FAERS Safety Report 10481231 (Version 1)
Quarter: 2014Q3

REPORT INFORMATION
  Report Type: Spontaneous
  Country: US (occurrence: US)
  Receive Date: 20140929
  Receipt Date: 20140929
  Transmission Date: 20150326
  Serious: No
  Sender: FDA-Public Use
  Company Number: US-PFIZER INC-2014266145

PATIENT
  Age: 40 Year
  Sex: Female

DRUGS (1)
  1. SUTENT [Suspect]
     Active Substance: SUNITINIB MALATE
     Indication: MALIGNANT NEOPLASM OF PLEURA
     Dosage: 50 MG, DAILY, 28 DAYS 4 WEEKS ON AND 2 WEEKS OFF.
     Dates: start: 20140808

REACTIONS (3)
  - Disease progression [Unknown]
  - Malignant neoplasm of pleura [Unknown]
  - Off label use [Unknown]
